FAERS Safety Report 18305454 (Version 1)
Quarter: 2020Q3

REPORT INFORMATION
  Report Type: Spontaneous
  Country: AT (occurrence: AT)
  Receive Date: 20200924
  Receipt Date: 20200924
  Transmission Date: 20201103
  Serious: Yes (Other)
  Sender: FDA-Public Use
  Company Number: AT-ROCHE-2683652

PATIENT
  Age: 69 Year
  Sex: Female

DRUGS (2)
  1. TOCILIZUMAB. [Suspect]
     Active Substance: TOCILIZUMAB
     Indication: ENCEPHALITIS
     Route: 065
  2. RITUXIMAB. [Suspect]
     Active Substance: RITUXIMAB
     Indication: ENCEPHALITIS
     Dosage: 5 TIMES, DISCONTINUED
     Route: 065
     Dates: end: 202003

REACTIONS (3)
  - Intentional product use issue [Unknown]
  - Status epilepticus [Unknown]
  - Off label use [Unknown]
